FAERS Safety Report 18151653 (Version 2)
Quarter: 2020Q3

REPORT INFORMATION
  Report Type: Spontaneous
  Country: IT (occurrence: IT)
  Receive Date: 20200814
  Receipt Date: 20200911
  Transmission Date: 20201103
  Serious: Yes (Other)
  Sender: FDA-Public Use
  Company Number: IT-009507513-2008ITA001114

PATIENT
  Sex: Male

DRUGS (1)
  1. JANUMET [Suspect]
     Active Substance: METFORMIN HYDROCHLORIDE\SITAGLIPTIN PHOSPHATE
     Dosage: UNK
     Route: 048

REACTIONS (9)
  - Brain hypoxia [Unknown]
  - Nervousness [Unknown]
  - Sleep apnoea syndrome [Unknown]
  - Middle insomnia [Unknown]
  - Insomnia [Unknown]
  - Aggression [Unknown]
  - Confusional state [Unknown]
  - Nocturnal dyspnoea [Unknown]
  - Anxiety [Unknown]
